FAERS Safety Report 5655183-2 (Version None)
Quarter: 2008Q1

REPORT INFORMATION
  Report Type: 
  Country: None (occurrence: None)
  Receive Date: 20080307
  Receipt Date: 20080227
  Transmission Date: 20080703
  Serious: Yes (Other)
  Sender: FDA-Public Use
  Company Number: US-GENENTECH-224353

PATIENT
  Sex: Male
  Weight: 84.353 kg

DRUGS (15)
  1. RAPTIVA [Suspect]
     Indication: PSORIASIS
     Dosage: 120 MG, 1/WEEK
     Route: 058
     Dates: start: 20050525, end: 20060414
  2. CYCLOSPORINE [Concomitant]
     Indication: DRUG USE FOR UNKNOWN INDICATION
     Dosage: 300 MG, QD
     Dates: start: 20050627
  3. CYCLOSPORINE [Concomitant]
     Dosage: 100 MG, BID
     Dates: start: 20060314, end: 20060414
  4. PUVA [Concomitant]
     Indication: DRUG USE FOR UNKNOWN INDICATION
     Route: 048
     Dates: start: 20051214
  5. OXSORALEN [Concomitant]
     Indication: PSORIASIS
     Dosage: 10 MG, 3/WEEK
     Dates: start: 20060106
  6. UVA THERAPY [Concomitant]
     Indication: PSORIASIS
  7. LIPITOR [Concomitant]
     Indication: DRUG USE FOR UNKNOWN INDICATION
     Dosage: 20 MG, UNK
  8. NIASPAN ER [Concomitant]
     Indication: DRUG USE FOR UNKNOWN INDICATION
     Dosage: 1000 MG, UNK
  9. ZYRTEC [Concomitant]
     Indication: DRUG USE FOR UNKNOWN INDICATION
  10. ZOLOFT [Concomitant]
     Indication: DRUG USE FOR UNKNOWN INDICATION
     Dosage: 75 MG, UNK
  11. ASPIRIN [Concomitant]
     Indication: DRUG USE FOR UNKNOWN INDICATION
     Dosage: 81 MG, UNK
  12. VITAMIN B [Concomitant]
     Indication: DRUG USE FOR UNKNOWN INDICATION
  13. ASCORBIC ACID [Concomitant]
     Indication: DRUG USE FOR UNKNOWN INDICATION
  14. VITAMIN E [Concomitant]
     Indication: DRUG USE FOR UNKNOWN INDICATION
  15. FISH OIL [Concomitant]
     Indication: DRUG USE FOR UNKNOWN INDICATION

REACTIONS (1)
  - PERIPHERAL T-CELL LYMPHOMA UNSPECIFIED [None]
